FAERS Safety Report 18579282 (Version 3)
Quarter: 2021Q2

REPORT INFORMATION
  Report Type: Spontaneous
  Country: SG (occurrence: AU)
  Receive Date: 20201204
  Receipt Date: 20210611
  Transmission Date: 20210717
  Serious: Yes (Death, Hospitalization, Other)
  Sender: FDA-Public Use
  Company Number: AU-GLAXOSMITHKLINE-AU2020236370

PATIENT
  Age: 95 Year
  Sex: Female

DRUGS (1)
  1. INCRUSE ELLIPTA [Suspect]
     Active Substance: UMECLIDINIUM BROMIDE
     Indication: BRONCHITIS CHRONIC
     Dosage: UNK
     Route: 055

REACTIONS (5)
  - Cough [Unknown]
  - Death [Fatal]
  - Dry mouth [Unknown]
  - Drug ineffective [Unknown]
  - Product use in unapproved indication [Unknown]
